FAERS Safety Report 7033400-4 (Version None)
Quarter: 2010Q4

REPORT INFORMATION
  Report Type: 
  Country: None (occurrence: None)
  Receive Date: 20101007
  Receipt Date: 20100930
  Transmission Date: 20110411
  Serious: Yes (Other)
  Sender: FDA-Public Use
  Company Number: DE-B.I. PHARMACEUTICALS,INC./RIDGEFIELD-2010-DE-02647DE

PATIENT
  Sex: Female
  Weight: 49 kg

DRUGS (3)
  1. VIRAMUNE [Suspect]
     Indication: HIV INFECTION
     Dosage: 400 MG
     Route: 048
     Dates: start: 20001113
  2. EPIVIR [Concomitant]
     Indication: HIV INFECTION
     Dosage: 300 MG
     Route: 048
     Dates: start: 20001113, end: 20080903
  3. ZERIT [Concomitant]
     Indication: HIV INFECTION
     Dosage: 40 MG
     Route: 048
     Dates: start: 20001113, end: 20031017

REACTIONS (1)
  - ABORTION [None]
